FAERS Safety Report 15110990 (Version 1)
Quarter: 2018Q2

REPORT INFORMATION
  Report Type: Spontaneous
  Country: US (occurrence: US)
  Receive Date: 20180612
  Receipt Date: 20180612
  Transmission Date: 20180711
  Serious: Yes (Other)
  Sender: FDA-Public Use
  Company Number: None

PATIENT
  Age: 57 Year
  Sex: Female
  Weight: 584.55 kg

DRUGS (7)
  1. MORPHINE [Concomitant]
     Active Substance: MORPHINE
  2. FASLODEX [Suspect]
     Active Substance: FULVESTRANT
     Indication: BREAST CANCER
     Route: 030
     Dates: start: 20180219, end: 20180611
  3. GABAPENTIN. [Concomitant]
     Active Substance: GABAPENTIN
  4. VERZENIO [Concomitant]
     Active Substance: ABEMACICLIB
  5. IBUPROFEN. [Concomitant]
     Active Substance: IBUPROFEN
  6. CAPECITABINE. [Concomitant]
     Active Substance: CAPECITABINE
  7. OXYCODONE [Concomitant]
     Active Substance: OXYCODONE

REACTIONS (1)
  - Disease progression [None]
